FAERS Safety Report 18992433 (Version 3)
Quarter: 2021Q2

REPORT INFORMATION
  Report Type: Spontaneous
  Country: US (occurrence: US)
  Receive Date: 20210310
  Receipt Date: 20210507
  Transmission Date: 20210717
  Serious: No
  Sender: FDA-Public Use
  Company Number: US-ASTRAZENECA-2021A051928

PATIENT
  Age: 753 Month
  Sex: Female
  Weight: 121.1 kg

DRUGS (5)
  1. BYDUREON BCISE [Suspect]
     Active Substance: EXENATIDE
     Indication: TYPE 2 DIABETES MELLITUS
     Route: 065
     Dates: start: 202008, end: 202012
  2. BYDUREON BCISE [Suspect]
     Active Substance: EXENATIDE
     Indication: DRUG THERAPY ENHANCEMENT
     Route: 065
     Dates: start: 202008, end: 202012
  3. BYDUREON BCISE [Suspect]
     Active Substance: EXENATIDE
     Indication: DRUG THERAPY ENHANCEMENT
     Route: 065
     Dates: start: 202101
  4. INSULIN [Concomitant]
     Active Substance: INSULIN NOS
     Indication: BLOOD GLUCOSE ABNORMAL
     Dosage: AS REQUIRED
     Route: 065
  5. BYDUREON BCISE [Suspect]
     Active Substance: EXENATIDE
     Indication: TYPE 2 DIABETES MELLITUS
     Route: 065
     Dates: start: 202101

REACTIONS (7)
  - Blood glucose abnormal [Recovered/Resolved]
  - Injection site pain [Unknown]
  - Injection site haemorrhage [Unknown]
  - Needle issue [Unknown]
  - Product dose omission issue [Unknown]
  - Device issue [Unknown]
  - Insurance issue [Unknown]

NARRATIVE: CASE EVENT DATE: 202012
